FAERS Safety Report 7113413-4 (Version None)
Quarter: 2010Q4

REPORT INFORMATION
  Report Type: 
  Country: None (occurrence: None)
  Receive Date: 20101119
  Receipt Date: 20100825
  Transmission Date: 20110411
  Serious: No
  Sender: FDA-Public Use
  Company Number: A0876178A

PATIENT
  Sex: Male

DRUGS (1)
  1. ARZERRA [Suspect]
     Dosage: 100MG SINGLE DOSE
     Route: 042
     Dates: start: 20100802

REACTIONS (1)
  - INCORRECT DOSE ADMINISTERED [None]
